FAERS Safety Report 13082644 (Version 1)
Quarter: 2017Q1

REPORT INFORMATION
  Report Type: Spontaneous
  Country: US (occurrence: US)
  Receive Date: 20170103
  Receipt Date: 20170103
  Transmission Date: 20170428
  Serious: No
  Sender: FDA-Public Use
  Company Number: US-CMP PHARMA-2016CMP00045

PATIENT
  Age: 7 Month
  Sex: Female

DRUGS (1)
  1. TRIANEX [Suspect]
     Active Substance: TRIAMCINOLONE ACETONIDE
     Indication: RASH ERYTHEMATOUS
     Dosage: UNK, 2X/DAY
     Route: 061
     Dates: start: 20130531, end: 20130604

REACTIONS (2)
  - Wound secretion [Not Recovered/Not Resolved]
  - Erythema [Not Recovered/Not Resolved]

NARRATIVE: CASE EVENT DATE: 20130531
